FAERS Safety Report 8914855 (Version 1)
Quarter: 2012Q4

REPORT INFORMATION
  Report Type: 
  Country: BR (occurrence: BR)
  Receive Date: 20121119
  Receipt Date: 20121119
  Transmission Date: 20130627
  Serious: Yes (Other)
  Sender: FDA-Public Use
  Company Number: BR-BAYER-2012-118335

PATIENT
  Age: 33 Year
  Sex: Female
  Weight: 72.11 kg

DRUGS (2)
  1. QLAIRA [Suspect]
     Indication: CONTRACEPTION
     Dosage: 1 DF, QD
     Route: 048
     Dates: start: 20121106
  2. QLAIRA [Suspect]
     Indication: MENSTRUAL FLOW EXCESSIVE

REACTIONS (2)
  - Urinary tract infection [Not Recovered/Not Resolved]
  - Vulvovaginal burning sensation [None]
